FAERS Safety Report 7278382-5 (Version None)
Quarter: 2011Q1

REPORT INFORMATION
  Report Type: 
  Country: None (occurrence: None)
  Receive Date: 20110202
  Receipt Date: 20110202
  Transmission Date: 20110831
  Serious: Yes (Other)
  Sender: FDA-Public Use
  Company Number: None

PATIENT
  Age: 20 Year
  Sex: Female
  Weight: 63.5036 kg

DRUGS (5)
  1. LAMICTAL [Concomitant]
  2. ZYRTEC [Concomitant]
  3. MULTI-VITAMIN [Concomitant]
  4. MIRENA [Suspect]
     Dosage: INTRA-UTERINE
     Route: 015
     Dates: start: 20090427
  5. CALCIUM SUPP [Concomitant]

REACTIONS (2)
  - METRORRHAGIA [None]
  - HAEMORRHAGE [None]
